FAERS Safety Report 4323794-2 (Version None)
Quarter: 2004Q1

REPORT INFORMATION
  Report Type: 
  Country: None (occurrence: None)
  Receive Date: 20040323
  Receipt Date: 20040308
  Transmission Date: 20041129
  Serious: Yes (Hospitalization, Other)
  Sender: FDA-Public Use
  Company Number: 04-061-0161-1

PATIENT
  Age: 4 Year
  Sex: Female

DRUGS (1)
  1. CYTARABINE [Suspect]
     Indication: ACUTE MYELOID LEUKAEMIA
     Dosage: 3G/M2 X 2 / D 3 DAYS
     Dates: start: 20031210, end: 20040108

REACTIONS (10)
  - AUTOIMMUNE DISORDER [None]
  - BLINDNESS [None]
  - CUSHINGOID [None]
  - ENDOPHTHALMITIS [None]
  - EYE PRURITUS [None]
  - NEUTROPENIA [None]
  - OPTIC NERVE DISORDER [None]
  - PYREXIA [None]
  - SINUSITIS [None]
  - STREPTOCOCCAL BACTERAEMIA [None]
